FAERS Safety Report 10288099 (Version 1)
Quarter: 2014Q3

REPORT INFORMATION
  Report Type: Report from Study
  Country: US (occurrence: US)
  Receive Date: 20140709
  Receipt Date: 20140709
  Transmission Date: 20150326
  Serious: Yes (Death)
  Sender: FDA-Public Use
  Company Number: US-TAKEDA-2014MPI001843

PATIENT
  Age: 71 Year
  Sex: Male

DRUGS (3)
  1. VELCADE [Suspect]
     Active Substance: BORTEZOMIB
     Dosage: 2.25 MG, UNK
     Route: 058
     Dates: start: 20140404
  2. VELCADE [Suspect]
     Active Substance: BORTEZOMIB
     Dosage: 1.95 MG, UNK
     Route: 058
     Dates: start: 20140325
  3. VELCADE [Suspect]
     Active Substance: BORTEZOMIB
     Indication: PLASMA CELL MYELOMA
     Dosage: UNK
     Route: 058

REACTIONS (1)
  - Death [Fatal]
